FAERS Safety Report 4445648-3 (Version None)
Quarter: 2004Q3

REPORT INFORMATION
  Report Type: 
  Country: None (occurrence: None)
  Receive Date: 20040910
  Receipt Date: 20040830
  Transmission Date: 20050211
  Serious: Yes (Hospitalization)
  Sender: FDA-Public Use
  Company Number: JAFRA24905

PATIENT
  Age: 86 Year
  Sex: Male

DRUGS (18)
  1. PROPULSID [Suspect]
     Indication: DRUG USE FOR UNKNOWN INDICATION
     Route: 049
     Dates: start: 19950122, end: 19950222
  2. PRACTAZIN [Suspect]
     Route: 049
     Dates: end: 19950222
  3. PRACTAZIN [Suspect]
     Indication: DRUG USE FOR UNKNOWN INDICATION
     Route: 049
     Dates: end: 19950222
  4. TELDANE 120 MG [Suspect]
     Indication: DERMATITIS CONTACT
     Route: 049
     Dates: start: 19950220, end: 19950222
  5. PERISTALTINE [Suspect]
     Indication: CONSTIPATION
     Route: 049
     Dates: end: 19951222
  6. PURSENNIDE [Suspect]
     Indication: DRUG USE FOR UNKNOWN INDICATION
     Route: 049
     Dates: end: 19951219
  7. CHIBRO-PROSCAR [Concomitant]
     Indication: DRUG USE FOR UNKNOWN INDICATION
     Route: 065
  8. CERVOXAN [Concomitant]
     Indication: DRUG USE FOR UNKNOWN INDICATION
     Route: 065
  9. PERMIXON [Concomitant]
     Indication: DRUG USE FOR UNKNOWN INDICATION
     Route: 065
  10. TOT'HEMA [Concomitant]
     Route: 065
  11. TOT'HEMA [Concomitant]
     Route: 065
  12. TOT'HEMA [Concomitant]
     Route: 065
  13. TOT'HEMA [Concomitant]
     Route: 065
  14. TOT'HEMA [Concomitant]
     Route: 065
  15. TOT'HEMA [Concomitant]
     Route: 065
  16. TOT'HEMA [Concomitant]
     Indication: DRUG USE FOR UNKNOWN INDICATION
     Route: 065
  17. RISORDAN L.P. [Concomitant]
     Indication: DRUG USE FOR UNKNOWN INDICATION
     Route: 065
  18. TINSET [Concomitant]
     Indication: DRUG USE FOR UNKNOWN INDICATION
     Route: 065

REACTIONS (2)
  - SYNCOPE [None]
  - TORSADE DE POINTES [None]
